FAERS Safety Report 9904274 (Version 2)
Quarter: 2014Q1

REPORT INFORMATION
  Report Type: Spontaneous
  Country: FR (occurrence: FR)
  Receive Date: 20140218
  Receipt Date: 20140311
  Transmission Date: 20141002
  Serious: No
  Sender: FDA-Public Use
  Company Number: FR-ASTRAZENECA-2014SE10451

PATIENT
  Age: 519 Month
  Sex: Female
  Weight: 65 kg

DRUGS (6)
  1. XEROQUEL [Suspect]
     Indication: SLEEP DISORDER
     Dosage: PROGRESSIVE INCREASE OF DOSES
     Route: 048
     Dates: start: 201309
  2. XEROQUEL [Suspect]
     Indication: SLEEP DISORDER
     Route: 048
     Dates: start: 201312
  3. XEROQUEL [Suspect]
     Indication: SLEEP DISORDER
     Route: 048
  4. XEROQUEL [Suspect]
     Indication: SLEEP DISORDER
     Dosage: DOSE BETWEEN 100 AND 150 MG PER DAY DEPENDING OF THE SYMPTOMS
     Route: 048
  5. VENLAFAXINE [Concomitant]
     Route: 048
     Dates: start: 2011
  6. BROMAZEPAM [Concomitant]
     Route: 048

REACTIONS (5)
  - Oral fungal infection [Not Recovered/Not Resolved]
  - Fungal infection [Not Recovered/Not Resolved]
  - Tonsillitis [Not Recovered/Not Resolved]
  - Neutropenia [Unknown]
  - Off label use [Not Recovered/Not Resolved]
